FAERS Safety Report 6114359-0 (Version None)
Quarter: 2009Q1

REPORT INFORMATION
  Report Type: 
  Country: None (occurrence: None)
  Receive Date: 20090312
  Receipt Date: 20090302
  Transmission Date: 20090719
  Serious: Yes (Hospitalization)
  Sender: FDA-Public Use
  Company Number: US-ELI_LILLY_AND_COMPANY-US200902004271

PATIENT
  Sex: Female

DRUGS (6)
  1. FORTEO [Suspect]
     Indication: OSTEOPOROSIS
     Dosage: 20 UG, DAILY (1/D)
     Dates: start: 20071201
  2. COUMADIN [Concomitant]
  3. TORSEMIDE [Concomitant]
  4. SYNTHROID [Concomitant]
  5. ACTONEL [Concomitant]
  6. LOPRESSOR [Concomitant]

REACTIONS (1)
  - PALPITATIONS [None]
